FAERS Safety Report 6773918-2 (Version None)
Quarter: 2010Q2

REPORT INFORMATION
  Report Type: 
  Country: None (occurrence: None)
  Receive Date: 20100615
  Receipt Date: 20100615
  Transmission Date: 20101027
  Serious: Yes (Other)
  Sender: FDA-Public Use
  Company Number: None

PATIENT
  Age: 77 Year
  Sex: Female
  Weight: 80.2867 kg

DRUGS (3)
  1. ALPRAZOLAM [Suspect]
     Indication: DEATH OF RELATIVE
     Dosage: ONE A DAY
     Dates: start: 20091201
  2. ALPRAZOLAM [Suspect]
     Indication: DEATH OF RELATIVE
     Dosage: ONE A DAY
     Dates: start: 20091202
  3. ALPRAZOLAM [Suspect]
     Indication: DEATH OF RELATIVE
     Dosage: ONE A DAY
     Dates: start: 20091203

REACTIONS (13)
  - ABASIA [None]
  - ANXIETY [None]
  - BALANCE DISORDER [None]
  - BLISTER [None]
  - COORDINATION ABNORMAL [None]
  - DISTURBANCE IN ATTENTION [None]
  - DYSPNOEA [None]
  - MEMORY IMPAIRMENT [None]
  - MOVEMENT DISORDER [None]
  - PRURITUS [None]
  - RASH [None]
  - SKIN EXFOLIATION [None]
  - SWELLING [None]
